FAERS Safety Report 23319626 (Version 2)
Quarter: 2024Q1

REPORT INFORMATION
  Report Type: Spontaneous
  Country: CZ (occurrence: CZ)
  Receive Date: 20231220
  Receipt Date: 20240125
  Transmission Date: 20240410
  Serious: Yes (Other)
  Sender: FDA-Public Use
  Company Number: CZ-OTSUKA-2023_028260

PATIENT
  Age: 40 Year
  Sex: Male

DRUGS (7)
  1. ARIPIPRAZOLE [Suspect]
     Active Substance: ARIPIPRAZOLE
     Indication: Psychotic disorder
     Dosage: 25 MILLIGRAM, ONCE A DAY (25 MILLIGRAM DAILY; DOSE TITRATED TO 25 MG P. D)
     Route: 048
     Dates: start: 2022, end: 2022
  2. ARIPIPRAZOLE [Suspect]
     Active Substance: ARIPIPRAZOLE
     Indication: Schizophrenia
  3. OLANZAPINE [Suspect]
     Active Substance: OLANZAPINE
     Indication: Psychotic disorder
     Dosage: UNK
     Route: 065
  4. BREXPIPRAZOLE [Suspect]
     Active Substance: BREXPIPRAZOLE
     Indication: Schizophrenia
     Dosage: 3 MILLIGRAM
     Route: 065
     Dates: start: 202304
  5. BREXPIPRAZOLE [Suspect]
     Active Substance: BREXPIPRAZOLE
     Indication: Psychotic disorder
  6. CARIPRAZINE [Suspect]
     Active Substance: CARIPRAZINE
     Indication: Schizophrenia
     Dosage: UNK
     Route: 065
  7. QUETIAPINE [Suspect]
     Active Substance: QUETIAPINE
     Indication: Schizophrenia
     Dosage: 300 MILLIGRAM, AT BED TIME
     Route: 065

REACTIONS (16)
  - Tardive dyskinesia [Recovered/Resolved]
  - Hallucination, auditory [Not Recovered/Not Resolved]
  - Activation syndrome [Recovered/Resolved]
  - Akathisia [Recovered/Resolved]
  - Hypersexuality [Unknown]
  - Paranoia [Unknown]
  - Discomfort [Unknown]
  - Social problem [Unknown]
  - Anxiety [Unknown]
  - Extrapyramidal disorder [Recovered/Resolved]
  - Sedation [Recovered/Resolved]
  - Muscle rigidity [Recovered/Resolved]
  - Sedation complication [Recovered/Resolved]
  - Product use in unapproved indication [Unknown]
  - Drug ineffective [Recovered/Resolved]
  - Therapeutic product effect incomplete [Recovered/Resolved]

NARRATIVE: CASE EVENT DATE: 20220101
